FAERS Safety Report 24801312 (Version 1)
Quarter: 2025Q1

REPORT INFORMATION
  Report Type: Spontaneous
  Country: US (occurrence: US)
  Receive Date: 20250102
  Receipt Date: 20250102
  Transmission Date: 20250408
  Serious: Yes (Other)
  Sender: BRISTOL-MYERS SQUIBB COMPANY
  Company Number: US-BRISTOL-MYERS SQUIBB COMPANY-2024-201268

PATIENT
  Age: 77 Year
  Sex: Male

DRUGS (1)
  1. POMALYST [Suspect]
     Active Substance: POMALIDOMIDE
     Indication: Primary amyloidosis
     Dosage: DAILY FOR 21 DAYS
     Route: 048

REACTIONS (5)
  - Subclavian vein thrombosis [Unknown]
  - Fatigue [Unknown]
  - Dyspnoea [Unknown]
  - Rash [Unknown]
  - Off label use [Unknown]
